FAERS Safety Report 16833813 (Version 1)
Quarter: 2019Q3

REPORT INFORMATION
  Report Type: Spontaneous
  Country: US (occurrence: US)
  Receive Date: 20190920
  Receipt Date: 20190920
  Transmission Date: 20191005
  Serious: No
  Sender: FDA-Public Use
  Company Number: US-ADAMAS PHARMA, LLC-2019ADA01694

PATIENT
  Sex: Male

DRUGS (4)
  1. GOCOVRI [Suspect]
     Active Substance: AMANTADINE
     Dosage: 1 CAPSULES, 1X/DAY AT BEDTIME
     Dates: start: 201907, end: 20190722
  2. GOCOVRI [Suspect]
     Active Substance: AMANTADINE
     Dosage: 2 CAPSULES, 1X/DAY AT BEDTIME
     Dates: start: 20190723, end: 20190723
  3. GOCOVRI [Suspect]
     Active Substance: AMANTADINE
     Dosage: 1 CAPSULES, 1X/DAY AT BEDTIME
     Dates: start: 201907, end: 201907
  4. GOCOVRI [Suspect]
     Active Substance: AMANTADINE
     Dosage: 2 CAPSULES, 1X/DAY AT BEDTIME
     Dates: start: 201907, end: 201907

REACTIONS (1)
  - Hemiparesis [Not Recovered/Not Resolved]

NARRATIVE: CASE EVENT DATE: 201907
